FAERS Safety Report 10422973 (Version 1)
Quarter: 2014Q3

REPORT INFORMATION
  Report Type: Spontaneous
  Country: US (occurrence: None)
  Receive Date: 20140709
  Receipt Date: 20140709
  Transmission Date: 20150326
  Serious: Yes (Congenital Anomaly)
  Sender: FDA-Public Use
  Company Number: PHEH2013US025425

PATIENT
  Age: 43 Year
  Sex: Male

DRUGS (4)
  1. ALBUTEROL (SALBUTAMOL) [Concomitant]
     Active Substance: ALBUTEROL
  2. ALBUTEROL (SALBUTAMOL) [Concomitant]
     Active Substance: ALBUTEROL
  3. OMEPRAZOLE (OMEPRAZOLE [Concomitant]
  4. GLEEVEC [Suspect]
     Active Substance: IMATINIB MESYLATE
     Route: 048
     Dates: start: 2009

REACTIONS (1)
  - Exposure via father [None]
